FAERS Safety Report 19919959 (Version 2)
Quarter: 2021Q4

REPORT INFORMATION
  Report Type: Spontaneous
  Country: US (occurrence: US)
  Receive Date: 20211005
  Receipt Date: 20211018
  Transmission Date: 20220303
  Serious: No
  Sender: FDA-Public Use
  Company Number: US-AMGEN-USASP2021148717

PATIENT
  Age: 43 Year
  Sex: Female
  Weight: 60.77 kg

DRUGS (2)
  1. PROLIA [Suspect]
     Active Substance: DENOSUMAB
     Indication: Bone loss
     Dosage: 60 MILLIGRAM, Q6MO
     Route: 065
     Dates: start: 2015
  2. PROLIA [Suspect]
     Active Substance: DENOSUMAB
     Indication: Breast cancer

REACTIONS (1)
  - Accidental exposure to product [Unknown]

NARRATIVE: CASE EVENT DATE: 20210923
